FAERS Safety Report 9552029 (Version 1)
Quarter: 2013Q3

REPORT INFORMATION
  Report Type: Spontaneous
  Country: US (occurrence: None)
  Receive Date: 20130923
  Receipt Date: 20130923
  Transmission Date: 20140515
  Serious: Yes (Hospitalization)
  Sender: FDA-Public Use
  Company Number: None

PATIENT
  Age: 61 Year
  Sex: Male
  Weight: 89.6 kg

DRUGS (1)
  1. CISPLATIN [Suspect]
     Dosage: 190MG WEEKLY, IV HYDRATION
     Route: 042

REACTIONS (8)
  - Retching [None]
  - Vomiting [None]
  - Nausea [None]
  - Constipation [None]
  - Abdominal pain [None]
  - Faecaloma [None]
  - Urinary retention [None]
  - Depression [None]
